FAERS Safety Report 15057401 (Version 1)
Quarter: 2018Q2

REPORT INFORMATION
  Report Type: Spontaneous
  Country: US (occurrence: US)
  Receive Date: 20180625
  Receipt Date: 20180625
  Transmission Date: 20180711
  Serious: No
  Sender: FDA-Public Use
  Company Number: US-JNJFOC-20180615949

PATIENT
  Age: 48 Year
  Sex: Female
  Weight: 52.16 kg

DRUGS (4)
  1. XARELTO [Suspect]
     Active Substance: RIVAROXABAN
     Indication: THROMBOSIS
     Route: 048
     Dates: start: 20180531
  2. MIRAPEX [Concomitant]
     Active Substance: PRAMIPEXOLE DIHYDROCHLORIDE
     Indication: RESTLESS LEGS SYNDROME
     Route: 065
  3. CLONAPIN [Concomitant]
     Active Substance: CLONAZEPAM
     Dosage: ONCE EVERY NIGHT
     Route: 065
  4. SUVOREXANT. [Concomitant]
     Active Substance: SUVOREXANT
     Dosage: ONCE EVERY NIGHT
     Route: 065

REACTIONS (2)
  - Joint swelling [Not Recovered/Not Resolved]
  - Arthralgia [Not Recovered/Not Resolved]

NARRATIVE: CASE EVENT DATE: 20180612
